FAERS Safety Report 6373404-8 (Version None)
Quarter: 2009Q3

REPORT INFORMATION
  Report Type: 
  Country: None (occurrence: None)
  Receive Date: 20090924
  Receipt Date: 20090324
  Transmission Date: 20100115
  Serious: No
  Sender: FDA-Public Use
  Company Number: US-ASTRAZENECA-2009UW07507

PATIENT
  Age: 55 Year
  Sex: Female
  Weight: 72.6 kg

DRUGS (6)
  1. SEROQUEL XR [Suspect]
     Indication: DEPRESSION
     Route: 048
     Dates: start: 20090318
  2. REQUIP [Concomitant]
  3. LAMICTAL [Concomitant]
  4. DARVOCET [Concomitant]
  5. LYRICA [Concomitant]
  6. NEURONTIN [Concomitant]

REACTIONS (3)
  - DYSKINESIA [None]
  - PRURITUS [None]
  - RESTLESS LEGS SYNDROME [None]
